FAERS Safety Report 4390912-X (Version None)
Quarter: 2004Q3

REPORT INFORMATION
  Report Type: 
  Country: None (occurrence: None)
  Receive Date: 20040707
  Receipt Date: 20040204
  Transmission Date: 20050211
  Serious: Yes (Other)
  Sender: FDA-Public Use
  Company Number: 200410493FR

PATIENT
  Age: 95 Year
  Sex: Female

DRUGS (10)
  1. KETEK [Suspect]
     Route: 048
     Dates: start: 20040202, end: 20040202
  2. ARICEPT [Suspect]
     Indication: DEMENTIA ALZHEIMER'S TYPE
  3. AMLOR [Suspect]
  4. DIGOXIN [Concomitant]
     Dosage: DOSE UNIT: UNITS
     Route: 048
  5. MOLSIDOMINE [Concomitant]
  6. DOLIPRANE [Concomitant]
  7. LORAZEPAM [Concomitant]
  8. ARICEPT [Concomitant]
  9. DIGOXIN [Concomitant]
  10. ASPIRIN [Concomitant]

REACTIONS (17)
  - BLOOD PRESSURE DECREASED [None]
  - BRADYCARDIA [None]
  - DIARRHOEA [None]
  - DRUG INTERACTION [None]
  - DYSPNOEA [None]
  - ELECTROCARDIOGRAM ABNORMAL [None]
  - ELECTROCARDIOGRAM T WAVE ABNORMAL [None]
  - FALL [None]
  - GASTROENTERITIS [None]
  - HYPERHIDROSIS [None]
  - LOSS OF CONSCIOUSNESS [None]
  - MALAISE [None]
  - MYOCARDIAL ISCHAEMIA [None]
  - OXYGEN SATURATION DECREASED [None]
  - PULSE ABSENT [None]
  - SHOCK [None]
  - SYNCOPE VASOVAGAL [None]
